FAERS Safety Report 12876066 (Version 2)
Quarter: 2021Q3

REPORT INFORMATION
  Report Type: Spontaneous
  Country: US (occurrence: US)
  Receive Date: 20161024
  Receipt Date: 20210817
  Transmission Date: 20211014
  Serious: No
  Sender: FDA-Public Use
  Company Number: US-JAZZ-2016-US-015411

PATIENT
  Sex: Female

DRUGS (39)
  1. CALCIUM [Concomitant]
     Active Substance: CALCIUM
  2. VITAMIN D3 [Concomitant]
     Active Substance: CHOLECALCIFEROL
  3. ALBUTEROL SULFATE. [Concomitant]
     Active Substance: ALBUTEROL SULFATE
  4. CELEXA [Concomitant]
     Active Substance: CITALOPRAM HYDROBROMIDE
  5. FIBERCON [Concomitant]
     Active Substance: CALCIUM POLYCARBOPHIL
  6. LATUDA [Concomitant]
     Active Substance: LURASIDONE HYDROCHLORIDE
  7. IRON [FERROUS SULFATE] [Concomitant]
  8. BRINTELLIX [Concomitant]
     Active Substance: VORTIOXETINE HYDROBROMIDE
  9. ABILIFY [Concomitant]
     Active Substance: ARIPIPRAZOLE
  10. EXALGO [Concomitant]
     Active Substance: HYDROMORPHONE HYDROCHLORIDE
  11. DEXAMETHASONE. [Concomitant]
     Active Substance: DEXAMETHASONE
  12. GLUCOSAMINE AND CHONDROITIN [Concomitant]
     Active Substance: CHONDROITIN SULFATE (BOVINE)\GLUCOSAMINE HYDROCHLORIDE
  13. DILAUDID [Concomitant]
     Active Substance: HYDROMORPHONE HYDROCHLORIDE
  14. LAMICTAL [Concomitant]
     Active Substance: LAMOTRIGINE
  15. PROVIGIL [Concomitant]
     Active Substance: MODAFINIL
  16. KLONOPIN [Concomitant]
     Active Substance: CLONAZEPAM
  17. SIMVASTATIN. [Concomitant]
     Active Substance: SIMVASTATIN
  18. FLONASE [Concomitant]
     Active Substance: FLUTICASONE PROPIONATE
  19. SEROQUEL [Concomitant]
     Active Substance: QUETIAPINE FUMARATE
  20. NUVIGIL [Concomitant]
     Active Substance: ARMODAFINIL
  21. NEXIUM I.V. [Concomitant]
     Active Substance: ESOMEPRAZOLE SODIUM
  22. COLACE [Concomitant]
     Active Substance: DOCUSATE SODIUM
  23. XYREM [Suspect]
     Active Substance: SODIUM OXYBATE
     Indication: CATAPLEXY
     Dosage: 2.25 GRAM, BID
     Route: 048
     Dates: start: 201207, end: 201207
  24. XYREM [Suspect]
     Active Substance: SODIUM OXYBATE
     Indication: NARCOLEPSY
     Dosage: DOSE ADJUSTMENTS
     Route: 048
     Dates: start: 201207, end: 201207
  25. XYREM [Suspect]
     Active Substance: SODIUM OXYBATE
     Dosage: 4.5 GRAM, BID
     Route: 048
     Dates: start: 201207, end: 2013
  26. CYMBALTA [Concomitant]
     Active Substance: DULOXETINE HYDROCHLORIDE
  27. ADVAIR HFA [Concomitant]
     Active Substance: FLUTICASONE PROPIONATE\SALMETEROL XINAFOATE
  28. FLOMAX [Concomitant]
     Active Substance: TAMSULOSIN HYDROCHLORIDE
  29. SOMA [Concomitant]
     Active Substance: CARISOPRODOL
  30. SYNTHROID [Concomitant]
     Active Substance: LEVOTHYROXINE SODIUM
  31. BACLOFEN. [Concomitant]
     Active Substance: BACLOFEN
  32. MS CONTIN [Concomitant]
     Active Substance: MORPHINE SULFATE
  33. PAXIL [Concomitant]
     Active Substance: PAROXETINE HYDROCHLORIDE
  34. XYREM [Suspect]
     Active Substance: SODIUM OXYBATE
     Dosage: 4.5 GRAM, BID
     Route: 048
     Dates: start: 201408
  35. RANITIDINE [RANITIDINE HYDROCHLORIDE] [Concomitant]
     Active Substance: RANITIDINE
  36. MACROBID [Concomitant]
     Active Substance: NITROFURANTOIN\NITROFURANTOIN MONOHYDRATE
  37. ASPIRIN [ACETYLSALICYLIC ACID] [Concomitant]
     Active Substance: ASPIRIN
  38. BENTYL [Concomitant]
     Active Substance: DICYCLOMINE HYDROCHLORIDE
  39. PLAVIX [Concomitant]
     Active Substance: CLOPIDOGREL BISULFATE

REACTIONS (4)
  - Blood iron abnormal [Unknown]
  - Memory impairment [Not Recovered/Not Resolved]
  - Fall [Recovered/Resolved]
  - Somnambulism [Not Recovered/Not Resolved]
